FAERS Safety Report 24150409 (Version 1)
Quarter: 2024Q3

REPORT INFORMATION
  Report Type: Spontaneous
  Country: FR (occurrence: FR)
  Receive Date: 20240730
  Receipt Date: 20240730
  Transmission Date: 20241017
  Serious: Yes (Hospitalization, Other)
  Sender: AUROBINDO
  Company Number: FR-AFSSAPS-AVCN2024000543

PATIENT
  Age: 46 Year
  Sex: Female

DRUGS (2)
  1. ALPRAZOLAM [Suspect]
     Active Substance: ALPRAZOLAM
     Indication: Product used for unknown indication
     Dosage: ALPRAZOLAM 0,25MG : 2 CPS LE SOIR
     Route: 048
  2. OXYCODONE [Suspect]
     Active Substance: OXYCODONE
     Indication: Product used for unknown indication
     Dosage: 20MG LP MATIN ET SOIR + 20MG LI 3 FOIS PAR JOUR (EN MARS 2023)
     Route: 048
     Dates: start: 2017

REACTIONS (3)
  - Drug dependence [Recovered/Resolved]
  - Insomnia [Recovering/Resolving]
  - Drug withdrawal syndrome [Recovered/Resolved]

NARRATIVE: CASE EVENT DATE: 20230317
